FAERS Safety Report 5877960-5 (Version None)
Quarter: 2008Q3

REPORT INFORMATION
  Report Type: 
  Country: None (occurrence: None)
  Receive Date: 20080911
  Receipt Date: 20070820
  Transmission Date: 20090109
  Serious: Yes (Other)
  Sender: FDA-Public Use
  Company Number: B0536686A

PATIENT
  Age: 79 Year
  Sex: Male

DRUGS (9)
  1. ARTIST [Suspect]
     Indication: CARDIAC FAILURE
     Dosage: 2.5MG PER DAY
     Route: 048
     Dates: start: 20070628
  2. KAYEXALATE [Concomitant]
  3. WARFARIN SODIUM [Concomitant]
  4. CALTAN [Concomitant]
  5. MEXILETINE HYDROCHLORIDE [Concomitant]
  6. RANITIDINE HYDROCHLORIDE [Concomitant]
  7. BLOPRESS [Concomitant]
  8. RISUMIC [Concomitant]
  9. SENNOSIDES A + B [Concomitant]

REACTIONS (2)
  - HEPATITIS ACUTE [None]
  - VIRAL INFECTION [None]
